FAERS Safety Report 17831368 (Version 3)
Quarter: 2020Q3

REPORT INFORMATION
  Report Type: Report from Study
  Country: CA (occurrence: CA)
  Receive Date: 20200527
  Receipt Date: 20200730
  Transmission Date: 20201103
  Serious: Yes (Other)
  Sender: FDA-Public Use
  Company Number: CA-JNJFOC-20200504432

PATIENT
  Age: 14 Year
  Sex: Female

DRUGS (2)
  1. STELARA [Suspect]
     Active Substance: USTEKINUMAB
     Indication: CROHN^S DISEASE
     Route: 058
     Dates: start: 20191004, end: 20200504
  2. STELARA [Suspect]
     Active Substance: USTEKINUMAB

REACTIONS (6)
  - Crohn^s disease [Unknown]
  - Product use issue [Unknown]
  - Ear infection [Unknown]
  - Drug ineffective [Unknown]
  - Tonsillitis [Unknown]
  - Off label use [Unknown]

NARRATIVE: CASE EVENT DATE: 20191004
